FAERS Safety Report 6411093-4 (Version None)
Quarter: 2009Q4

REPORT INFORMATION
  Report Type: 
  Country: None (occurrence: None)
  Receive Date: 20091008
  Receipt Date: 20090920
  Transmission Date: 20100525
  Serious: Yes (Death)
  Sender: FDA-Public Use
  Company Number: B0596120A

PATIENT
  Sex: Female

DRUGS (5)
  1. LAPATINIB           (GENERIC) (LAPATINIB) [Suspect]
     Indication: BREAST CANCER
     Dosage: 1000 MG / PER DAY /
  2. PACLITAXEL (FORMULATION UNKNOWN) (GENERIC) (PACLITAXEL) [Suspect]
     Indication: BREAST CANCER
     Dosage: 80 MG/M2 / WEEKLY /
  3. CYCLOPHOSPHAMIDE [Suspect]
     Indication: BREAST CANCER
     Dosage: 60 MG/M2 /
  4. DOXORUBICIN HCL [Suspect]
     Indication: BREAST CANCER
     Dosage: 600 MG/M2 /
  5. TRASTUZUMAB (FORMULATION UNKNOWN) (TRASTUZUMAB) [Suspect]
     Indication: BREAST CANCER

REACTIONS (2)
  - CARDIOTOXICITY [None]
  - SEPSIS [None]
